FAERS Safety Report 8355183-8 (Version None)
Quarter: 2012Q2

REPORT INFORMATION
  Report Type: 
  Country: None (occurrence: None)
  Receive Date: 20120511
  Receipt Date: 20120509
  Transmission Date: 20120825
  Serious: Yes (Death, Hospitalization)
  Sender: FDA-Public Use
  Company Number: PHHY2012CH039785

PATIENT
  Age: 82 Year
  Sex: Male
  Weight: 80 kg

DRUGS (17)
  1. ATACAND HCT [Suspect]
     Dosage: 0.5 DF, UNK
     Dates: end: 20120105
  2. DUTASTERIDE/TAMSULOSIN HYDROCHLORIDE [Concomitant]
     Dosage: 1 DF, QD
     Route: 048
     Dates: end: 20120105
  3. METAMUCIL-2 [Concomitant]
     Dosage: 1 DF, UNK
     Route: 048
     Dates: end: 20111229
  4. PANTOPRAZOLE [Suspect]
     Dosage: 40 MG, QD
     Dates: end: 20120105
  5. PLAVIX [Suspect]
     Dosage: 75 MG, UNK
  6. XARELTO [Interacting]
     Dosage: 10 MG, UNK
     Dates: end: 20120103
  7. TORSEMIDE [Suspect]
     Dosage: 5 MG, UNK
  8. RIMACTANE [Interacting]
     Dosage: 450 MG, ONCE/SINGLE
     Dates: start: 20120103
  9. ASPIRIN [Suspect]
     Dosage: 100 MG, QD
     Dates: end: 20120105
  10. MAGNESIOCARD [Concomitant]
     Dosage: 5 MMOL, QD
     Route: 048
     Dates: end: 20120105
  11. NEBIVOLOL HCL [Concomitant]
     Dosage: 5 MG, QD
     Route: 048
     Dates: end: 20120105
  12. HALCION [Concomitant]
     Dosage: 0.125 MG, QD
     Route: 048
     Dates: end: 20111229
  13. NEURONTIN [Concomitant]
     Dosage: 300 MG, BID
     Route: 048
     Dates: end: 20111229
  14. ARTEOPTIC [Concomitant]
     Dosage: 1 GTT, QD
     Route: 047
     Dates: end: 20120105
  15. RIMACTANE [Interacting]
     Indication: INFECTION
     Dosage: 450 MG, BID
     Route: 048
     Dates: end: 20111227
  16. MINOCIN [Interacting]
     Indication: INFECTION
     Dosage: 2 DF, BID
     Dates: end: 20120105
  17. NOVALGIN                                /SCH/ [Concomitant]
     Dosage: 20 GTT, PRN
     Route: 047
     Dates: end: 20120105

REACTIONS (14)
  - PULMONARY EMBOLISM [None]
  - HYPERVENTILATION [None]
  - THROMBOSIS [None]
  - DYSPNOEA [None]
  - VOMITING [None]
  - DIARRHOEA [None]
  - ABDOMINAL PAIN UPPER [None]
  - DEATH [None]
  - DRUG INTERACTION [None]
  - GENERAL PHYSICAL HEALTH DETERIORATION [None]
  - DRUG-INDUCED LIVER INJURY [None]
  - GASTROENTERITIS [None]
  - JAUNDICE [None]
  - RENAL FUNCTION TEST ABNORMAL [None]
